FAERS Safety Report 18920003 (Version 1)
Quarter: 2021Q1

REPORT INFORMATION
  Report Type: Other
  Country: ES (occurrence: ES)
  Receive Date: 20210222
  Receipt Date: 20210222
  Transmission Date: 20210420
  Serious: Yes (Other)
  Sender: FDA-Public Use
  Company Number: ES-ROCHE-2766769

PATIENT

DRUGS (2)
  1. OCRELIZUMAB. [Suspect]
     Active Substance: OCRELIZUMAB
     Indication: PRIMARY PROGRESSIVE MULTIPLE SCLEROSIS
     Route: 042
  2. OCRELIZUMAB. [Suspect]
     Active Substance: OCRELIZUMAB
     Indication: RELAPSING MULTIPLE SCLEROSIS

REACTIONS (9)
  - Gastroenteritis [Unknown]
  - Urinary tract infection [Unknown]
  - Infusion related reaction [Unknown]
  - Tooth abscess [Unknown]
  - Cellulitis [Unknown]
  - Biliary colic [Unknown]
  - Alopecia areata [Unknown]
  - Drug ineffective [Unknown]
  - Pneumonia [Unknown]
